FAERS Safety Report 5826346-8 (Version None)
Quarter: 2008Q3

REPORT INFORMATION
  Report Type: 
  Country: None (occurrence: None)
  Receive Date: 20080729
  Receipt Date: 20080717
  Transmission Date: 20090109
  Serious: Yes (Other)
  Sender: FDA-Public Use
  Company Number: DE-PFIZER INC-2008061135

PATIENT
  Sex: Male

DRUGS (6)
  1. LYRICA [Suspect]
     Route: 048
  2. LISIGAMMA [Concomitant]
  3. ASPIRIN [Concomitant]
  4. OXAZEPAM [Concomitant]
  5. RISPERDAL [Concomitant]
  6. TRAMUNDIN [Concomitant]

REACTIONS (5)
  - APATHY [None]
  - DEMENTIA [None]
  - DRUG WITHDRAWAL SYNDROME [None]
  - FATIGUE [None]
  - UNRESPONSIVE TO STIMULI [None]
